FAERS Safety Report 8578185 (Version 4)
Quarter: 2012Q4

REPORT INFORMATION
  Report Type: Report from Study
  Country: KR (occurrence: KR)
  Receive Date: 20120524
  Receipt Date: 20121002
  Transmission Date: 20130627
  Serious: Yes (Hospitalization)
  Sender: FDA-Public Use
  Company Number: KR-ACTELION-A-CH2012-65468

PATIENT
  Age: 42 Year
  Sex: Female
  Weight: 53 kg

DRUGS (6)
  1. ACT-293987 [Suspect]
     Indication: PULMONARY ARTERIAL HYPERTENSION
     Dosage: 400 ?g, bid
     Route: 048
     Dates: start: 20101124, end: 20120129
  2. ACT-293987 [Suspect]
     Dosage: 200 ?g, qd
     Route: 048
     Dates: start: 20101117, end: 20101117
  3. ACT-293987 [Suspect]
     Dosage: 200 ?g, bid
     Route: 048
     Dates: start: 20101118, end: 20101123
  4. TRACLEER [Suspect]
     Indication: PULMONARY ARTERIAL HYPERTENSION
     Dosage: UNK
     Route: 048
     Dates: start: 20080109, end: 20120215
  5. TRACLEER [Suspect]
     Dosage: UNK
     Route: 048
     Dates: start: 201208
  6. CONTRACEPTIVES [Concomitant]

REACTIONS (5)
  - Caesarean section [Unknown]
  - Pregnancy [Unknown]
  - Amniocentesis [Unknown]
  - Live birth [Unknown]
  - Maternal exposure before pregnancy [None]
